FAERS Safety Report 4595936-5 (Version None)
Quarter: 2005Q1

REPORT INFORMATION
  Report Type: 
  Country: None (occurrence: None)
  Receive Date: 20050224
  Receipt Date: 20050203
  Transmission Date: 20050727
  Serious: Yes (Other)
  Sender: FDA-Public Use
  Company Number: FR_050205763

PATIENT
  Age: 52 Year
  Sex: Female

DRUGS (4)
  1. PROZAC [Suspect]
     Indication: DEPRESSION
     Dosage: 40 MG DAY
     Dates: start: 20000101, end: 20041001
  2. URBANYL (CLOBAZAM) [Concomitant]
  3. VASTAREL (TRIMETAZIDINE HYDROCHLORIDE) [Concomitant]
  4. APROVEL (IRBESARTAN) [Concomitant]

REACTIONS (2)
  - LEUKOPENIA [None]
  - NEUTROPENIA [None]
